FAERS Safety Report 14068812 (Version 1)
Quarter: 2017Q4

REPORT INFORMATION
  Report Type: Spontaneous
  Country: US (occurrence: US)
  Receive Date: 20171010
  Receipt Date: 20171010
  Transmission Date: 20180321
  Serious: Yes (Hospitalization)
  Sender: FDA-Public Use
  Company Number: US-BIOGEN-2017BI00467335

PATIENT
  Age: 44 Year
  Sex: Male
  Weight: 59.02 kg

DRUGS (4)
  1. TYSABRI [Suspect]
     Active Substance: NATALIZUMAB
     Indication: MULTIPLE SCLEROSIS
     Route: 065
  2. PAXIL [Concomitant]
     Active Substance: PAROXETINE HYDROCHLORIDE
     Indication: DEPRESSION
     Route: 048
     Dates: start: 20150728
  3. XANAX [Concomitant]
     Active Substance: ALPRAZOLAM
     Indication: ANXIETY
     Route: 048
     Dates: start: 20150728
  4. BUTALB/ACETAMINOPHEN/CAFFEINE [Concomitant]
     Indication: MIGRAINE
     Dosage: 1 TABLET AS NEEDED
     Route: 048
     Dates: start: 2010, end: 20170709

REACTIONS (3)
  - Cellulitis [Unknown]
  - Abscess [Recovered/Resolved]
  - Guttate psoriasis [Unknown]

NARRATIVE: CASE EVENT DATE: 201706
